FAERS Safety Report 9222722 (Version 2)
Quarter: 2013Q2

REPORT INFORMATION
  Report Type: Report from Study
  Country: GB (occurrence: GB)
  Receive Date: 20130410
  Receipt Date: 20130618
  Transmission Date: 20140414
  Serious: Yes (Death)
  Sender: FDA-Public Use
  Company Number: GB-ROCHE-1209243

PATIENT
  Sex: 0

DRUGS (2)
  1. ALTEPLASE [Suspect]
     Indication: ACUTE MYOCARDIAL INFARCTION
     Dosage: 15 MG BOLUS FOLLOWED BY 50 MG OVER 30 MINUTES, FOLLOWED BY 35 MG IN 1 HOUR
     Route: 042
  2. STREPTOKINASE [Suspect]
     Indication: ACUTE MYOCARDIAL INFARCTION
     Dosage: 1.5 MILLION UNITS OVER 1 HR
     Route: 042

REACTIONS (1)
  - Death [Fatal]
